FAERS Safety Report 24958807 (Version 1)
Quarter: 2025Q1

REPORT INFORMATION
  Report Type: Spontaneous
  Country: PL (occurrence: PL)
  Receive Date: 20250212
  Receipt Date: 20250212
  Transmission Date: 20250408
  Serious: Yes (Other)
  Sender: TAKEDA
  Company Number: None

PATIENT
  Age: 71 Year
  Sex: Male
  Weight: 77 kg

DRUGS (2)
  1. PRUCALOPRIDE SUCCINATE [Suspect]
     Active Substance: PRUCALOPRIDE SUCCINATE
     Indication: Constipation
     Dosage: 2 MILLIGRAM, MONTHLY
     Dates: start: 201910
  2. PRUCALOPRIDE SUCCINATE [Suspect]
     Active Substance: PRUCALOPRIDE SUCCINATE
     Indication: Gastrointestinal hypomotility
     Dosage: UNK UNK, MONTHLY
     Dates: start: 201910

REACTIONS (6)
  - Gastrointestinal motility disorder [Not Recovered/Not Resolved]
  - Bile output increased [Not Recovered/Not Resolved]
  - Functional gastrointestinal disorder [Not Recovered/Not Resolved]
  - Flatulence [Not Recovered/Not Resolved]
  - Diarrhoea [Not Recovered/Not Resolved]
  - Constipation [Not Recovered/Not Resolved]
